FAERS Safety Report 8328277-0 (Version None)
Quarter: 2012Q2

REPORT INFORMATION
  Report Type: 
  Country: None (occurrence: None)
  Receive Date: 20120502
  Receipt Date: 20120426
  Transmission Date: 20120825
  Serious: Yes (Hospitalization)
  Sender: FDA-Public Use
  Company Number: KR-ASTELLAS-2012JP003681

PATIENT
  Age: 48 Year
  Sex: Female
  Weight: 44 kg

DRUGS (8)
  1. METHOTREXATE [Concomitant]
     Dosage: 12.5 MG, WEEKLY
     Route: 048
     Dates: start: 20031202
  2. TACROLIMUS [Suspect]
     Dosage: 2 MG, UNKNOWN/D
     Route: 048
     Dates: start: 20120401
  3. HYDROXYCHLOROQUINE SULFATE [Concomitant]
     Dosage: 100 MG, BID
     Route: 048
     Dates: start: 20031126
  4. TACROLIMUS [Suspect]
     Indication: RHEUMATOID ARTHRITIS
     Dosage: 2 MG, UNKNOWN/D
     Route: 048
     Dates: start: 20120202, end: 20120402
  5. REBAMIDE [Concomitant]
     Dosage: 100 MG, BID
     Route: 048
     Dates: start: 20080603
  6. CELECOXIB [Concomitant]
     Dosage: 200 MG, BID
     Route: 048
     Dates: start: 20110801
  7. METHYLPREDNISOLONE [Concomitant]
     Dosage: 2 MG, UID/QD
     Route: 048
     Dates: start: 20041004
  8. FOLIC ACID [Concomitant]
     Dosage: 1 MG, UID/QD
     Route: 048
     Dates: start: 20031202

REACTIONS (1)
  - FOOT FRACTURE [None]
